FAERS Safety Report 4453647-0 (Version None)
Quarter: 2004Q3

REPORT INFORMATION
  Report Type: 
  Country: None (occurrence: None)
  Receive Date: 20040920
  Receipt Date: 20040907
  Transmission Date: 20050211
  Serious: Yes (Hospitalization)
  Sender: FDA-Public Use
  Company Number: JP-BRISTOL-MYERS SQUIBB COMPANY-12695441

PATIENT
  Age: 61 Year
  Sex: Female

DRUGS (4)
  1. MAXIPIME [Suspect]
     Route: 042
  2. DEPAKENE [Concomitant]
     Route: 048
     Dates: start: 20040727, end: 20040810
  3. TANATRIL [Concomitant]
     Route: 048
     Dates: start: 20040727, end: 20040810
  4. 8-HOUR BAYER [Concomitant]
     Route: 048
     Dates: start: 20040727, end: 20040810

REACTIONS (1)
  - STEVENS-JOHNSON SYNDROME [None]
